FAERS Safety Report 19561316 (Version 2)
Quarter: 2021Q3

REPORT INFORMATION
  Report Type: Spontaneous
  Country: ES (occurrence: ES)
  Receive Date: 20210714
  Receipt Date: 20210914
  Transmission Date: 20211014
  Serious: No
  Sender: FDA-Public Use
  Company Number: ES-ALLERGAN-2124586US

PATIENT
  Age: 23 Year
  Sex: Male
  Weight: 120 kg

DRUGS (1)
  1. OZURDEX [Suspect]
     Active Substance: DEXAMETHASONE
     Indication: MACULAR OEDEMA
     Dosage: 0.7 MG, SINGLE
     Route: 031
     Dates: start: 202106, end: 202106

REACTIONS (2)
  - Ocular hypertension [Not Recovered/Not Resolved]
  - Product complaint [Unknown]
